FAERS Safety Report 20444455 (Version 2)
Quarter: 2022Q1

REPORT INFORMATION
  Report Type: Report from Study
  Country: FR (occurrence: FR)
  Receive Date: 20220208
  Receipt Date: 20220217
  Transmission Date: 20220423
  Serious: Yes (Hospitalization)
  Sender: FDA-Public Use
  Company Number: FR-GLAXOSMITHKLINE-FR2022GSK019429

PATIENT
  Age: 70 Year
  Sex: Female

DRUGS (4)
  1. NIRAPARIB [Suspect]
     Active Substance: NIRAPARIB
     Indication: Ovarian cancer
     Dosage: 200 MG
     Route: 048
     Dates: start: 20220120, end: 20220128
  2. NIRAPARIB [Suspect]
     Active Substance: NIRAPARIB
     Indication: Endometrial cancer
  3. DETOXAN (GLUTATHIONE) [Concomitant]
     Dosage: UNK
     Route: 048
  4. METEOXANE [Concomitant]
     Active Substance: AMOBARBITAL\BELLADONNA LEAF\DIMETHICONE\ERGOTAMINE TARTRATE
     Indication: Abdominal pain upper
     Dosage: UNK
     Route: 048

REACTIONS (2)
  - Ascites [Unknown]
  - Cholecystitis [Unknown]

NARRATIVE: CASE EVENT DATE: 20220128
